FAERS Safety Report 9763582 (Version 1)
Quarter: 2013Q4

REPORT INFORMATION
  Report Type: Spontaneous
  Country: US (occurrence: US)
  Receive Date: 20131216
  Receipt Date: 20131216
  Transmission Date: 20140711
  Serious: No
  Sender: FDA-Public Use
  Company Number: US-BIOGENIDEC-2013BI104562

PATIENT
  Age: 55 Year
  Sex: Female
  Weight: 76 kg

DRUGS (8)
  1. TECFIDERA [Suspect]
     Indication: PRODUCT USED FOR UNKNOWN INDICATION
     Route: 048
  2. TECFIDERA [Suspect]
     Indication: PRODUCT USED FOR UNKNOWN INDICATION
     Route: 048
  3. ASA LOW DOSE [Concomitant]
     Route: 048
  4. AMBIEN [Concomitant]
     Route: 048
  5. CENTRUM SILVER [Concomitant]
     Route: 048
  6. IBUPROFEN [Concomitant]
     Route: 048
  7. TYLENOL PM [Concomitant]
     Route: 048
  8. VITAMIN B12 [Concomitant]
     Route: 048

REACTIONS (1)
  - Dizziness [Recovered/Resolved]
